FAERS Safety Report 9164520 (Version 2)
Quarter: 2013Q1

REPORT INFORMATION
  Report Type: Spontaneous
  Country: FR (occurrence: None)
  Receive Date: 20130226
  Receipt Date: 20130322
  Transmission Date: 20140127
  Serious: Yes (Hospitalization)
  Sender: FDA-Public Use
  Company Number: 1607638

PATIENT
  Age: 63 Year
  Sex: Female

DRUGS (2)
  1. CARBOPLATIN [Suspect]
     Indication: SQUAMOUS CELL CARCINOMA OF THE CERVIX
     Route: 041
     Dates: start: 20130123, end: 20130123
  2. PACLITAXEL MYLAN [Concomitant]

REACTIONS (6)
  - Hot flush [None]
  - Abdominal pain [None]
  - Nausea [None]
  - Erythema [None]
  - Hypersensitivity [None]
  - Erythema [None]
